FAERS Safety Report 4818971-8 (Version None)
Quarter: 2005Q4

REPORT INFORMATION
  Report Type: 
  Country: None (occurrence: None)
  Receive Date: 20051102
  Receipt Date: 20051102
  Transmission Date: 20060501
  Serious: No
  Sender: FDA-Public Use
  Company Number: None

PATIENT
  Sex: Male
  Weight: 72 kg

DRUGS (1)
  1. CELEXA [Suspect]
     Indication: DEPRESSION
     Dosage: 20 MG   QD    PO
     Route: 048
     Dates: start: 20041223, end: 20050504

REACTIONS (2)
  - BRADYCARDIA [None]
  - CARDIAC ARREST [None]
